FAERS Safety Report 10213676 (Version 1)
Quarter: 2014Q2

REPORT INFORMATION
  Report Type: Spontaneous
  Country: US (occurrence: None)
  Receive Date: 20140530
  Receipt Date: 20140530
  Transmission Date: 20141212
  Serious: Yes (Hospitalization)
  Sender: FDA-Public Use
  Company Number: UNT-2014-000846

PATIENT
  Age: 75 Year
  Sex: Female
  Weight: 85.3 kg

DRUGS (2)
  1. REMODULIN [Suspect]
     Indication: COR PULMONALE CHRONIC
     Dosage: 0.031 UG/KG, CONTINUING, SUBCUTAENOUS
     Route: 058
     Dates: start: 20131031
  2. TRACLEER (BOSENTAN) [Concomitant]

REACTIONS (3)
  - Hip fracture [None]
  - Pump reservoir issue [None]
  - Fall [None]
